FAERS Safety Report 21870662 (Version 2)
Quarter: 2023Q1

REPORT INFORMATION
  Report Type: Report from Study
  Country: US (occurrence: US)
  Receive Date: 20230117
  Receipt Date: 20230221
  Transmission Date: 20230417
  Serious: Yes (Life-Threatening, Hospitalization)
  Sender: FDA-Public Use
  Company Number: US-ELI_LILLY_AND_COMPANY-US202301006387

PATIENT
  Age: 59 Year
  Sex: Male
  Weight: 120 kg

DRUGS (2)
  1. CETUXIMAB [Suspect]
     Active Substance: CETUXIMAB
     Indication: Adenocarcinoma of colon
     Dosage: 250 MG/M2, Q2W
     Route: 042
     Dates: start: 20221130, end: 20221228
  2. ERAS 601 [Concomitant]
     Indication: Adenocarcinoma of colon
     Dosage: 40 MG, BID
     Route: 048
     Dates: start: 20221130

REACTIONS (2)
  - Dermatitis acneiform [Recovered/Resolved]
  - Skin infection [Recovered/Resolved]

NARRATIVE: CASE EVENT DATE: 20230106
